FAERS Safety Report 9323062 (Version 1)
Quarter: 2013Q2

REPORT INFORMATION
  Report Type: Report from Study
  Country: BR (occurrence: BR)
  Receive Date: 20130603
  Receipt Date: 20130603
  Transmission Date: 20140414
  Serious: Yes (Other)
  Sender: FDA-Public Use
  Company Number: PHHY2013BR054670

PATIENT
  Sex: Female

DRUGS (6)
  1. TEGRETOL [Suspect]
     Indication: PANIC DISORDER
     Dosage: 2 DF, QD (2 TABLETS BEFORE SLEEPING QD)
  2. TEGRETOL [Suspect]
     Indication: OFF LABEL USE
  3. QUETIAPINE [Suspect]
     Dosage: 25 MG, UNK (FOR SLEEPING AND IN THE MORNING AFTER BREAKFAST)
  4. QUETIAPINE [Suspect]
     Dosage: 100 UNK, UNK
  5. CYMBALTA [Suspect]
     Dosage: UNK UKN, UNK
  6. RIVOTRIL [Suspect]
     Dosage: 4 DF, UNK (WHEN PRESENTING EPISODES)
     Route: 060

REACTIONS (6)
  - Diabetes mellitus [Recovering/Resolving]
  - Panic disorder [Recovering/Resolving]
  - Hypertension [Recovering/Resolving]
  - Feeling abnormal [Recovering/Resolving]
  - Decreased interest [Recovering/Resolving]
  - Peripheral coldness [Recovering/Resolving]
